FAERS Safety Report 13554368 (Version 1)
Quarter: 2017Q2

REPORT INFORMATION
  Report Type: Spontaneous
  Country: US (occurrence: US)
  Receive Date: 20170517
  Receipt Date: 20170517
  Transmission Date: 20170830
  Serious: No
  Sender: FDA-Public Use
  Company Number: US-BAYER-2017-082970

PATIENT
  Age: 68 Year
  Sex: Female
  Weight: 64 kg

DRUGS (4)
  1. CLARITIN LIQUI-GELS [Suspect]
     Active Substance: LORATADINE
     Indication: BRONCHIAL DISORDER
     Route: 048
  2. CLARITIN [Suspect]
     Active Substance: LORATADINE
     Indication: DYSPHONIA
     Route: 048
     Dates: end: 20170430
  3. CLARITIN [Suspect]
     Active Substance: LORATADINE
     Indication: NASAL CONGESTION
  4. TYLENOL WITH CODEINE [Concomitant]
     Active Substance: ACETAMINOPHEN\CODEINE PHOSPHATE

REACTIONS (3)
  - Product use in unapproved indication [Unknown]
  - Inappropriate prescribing [Unknown]
  - Drug effective for unapproved indication [Unknown]
